FAERS Safety Report 26193927 (Version 1)
Quarter: 2025Q4

REPORT INFORMATION
  Report Type: Spontaneous
  Country: US (occurrence: None)
  Receive Date: 20251224
  Receipt Date: 20251224
  Transmission Date: 20260118
  Serious: No
  Sender: FDA-CTU
  Company Number: None

PATIENT
  Age: 53 Year
  Sex: Male
  Weight: 88.45 kg

DRUGS (1)
  1. TREMFYA [Suspect]
     Active Substance: GUSELKUMAB
     Indication: Psoriatic arthropathy
     Dosage: INJECT 100MG SUBCUTANEOUSLY  AT WEEK 0 AND  WEEK 4  AS  DIRECTED.
     Route: 058
     Dates: start: 202502

REACTIONS (2)
  - Coronary artery bypass [None]
  - Asthma [None]
